FAERS Safety Report 9318061 (Version 1)
Quarter: 2013Q2

REPORT INFORMATION
  Report Type: Spontaneous
  Country: US (occurrence: US)
  Receive Date: 20130530
  Receipt Date: 20130530
  Transmission Date: 20140414
  Serious: No
  Sender: FDA-Public Use
  Company Number: US-GLAXOSMITHKLINE-A1003078A

PATIENT
  Age: 61 Year
  Sex: Female

DRUGS (4)
  1. VENTOLIN [Suspect]
     Indication: ASTHMA
     Dosage: 4PUFF AS REQUIRED
     Route: 055
     Dates: start: 20120228
  2. SYMBICORT [Concomitant]
     Dates: start: 201202
  3. UNSPECIFIED [Concomitant]
     Indication: ASTHMA
     Route: 048
  4. MOTRIN [Concomitant]
     Dosage: 800MG PER DAY

REACTIONS (2)
  - Dyspnoea [Unknown]
  - Product quality issue [Unknown]
